FAERS Safety Report 4398046-5 (Version None)
Quarter: 2004Q3

REPORT INFORMATION
  Report Type: 
  Country: None (occurrence: None)
  Receive Date: 20040713
  Receipt Date: 20040701
  Transmission Date: 20050211
  Serious: Yes (Hospitalization)
  Sender: FDA-Public Use
  Company Number: AU-2004-028066

PATIENT
  Age: 20 Year
  Sex: Female
  Weight: 150.0499 kg

DRUGS (1)
  1. ULTRAVIST 370 [Suspect]
     Indication: COMPUTERISED TOMOGRAM
     Dosage: 100 ML, 1 DOSE, INTRAVENOUS
     Route: 042
     Dates: start: 20040629, end: 20040629

REACTIONS (2)
  - PULMONARY EMBOLISM [None]
  - RESPIRATORY DISTRESS [None]
